APPROVED DRUG PRODUCT: ENLON-PLUS
Active Ingredient: ATROPINE SULFATE; EDROPHONIUM CHLORIDE
Strength: 0.14MG/ML;10MG/ML
Dosage Form/Route: INJECTABLE;INJECTION
Application: N019678 | Product #001
Applicant: PHARMOBEDIENT CONSULTING LLC
Approved: Nov 6, 1991 | RLD: Yes | RS: No | Type: DISCN